FAERS Safety Report 8545510-0 (Version None)
Quarter: 2012Q3

REPORT INFORMATION
  Report Type: 
  Country: None (occurrence: None)
  Receive Date: 20120727
  Receipt Date: 20111021
  Transmission Date: 20120928
  Serious: No
  Sender: FDA-Public Use
  Company Number: US-ASTRAZENECA-2011SE63835

PATIENT
  Sex: Female

DRUGS (1)
  1. SEROQUEL [Suspect]
     Route: 048

REACTIONS (11)
  - ANXIETY [None]
  - AMNESIA [None]
  - HALLUCINATION [None]
  - GENERAL PHYSICAL HEALTH DETERIORATION [None]
  - NAUSEA [None]
  - VOMITING [None]
  - CONFUSIONAL STATE [None]
  - SLEEP DISORDER [None]
  - AGITATION [None]
  - INSOMNIA [None]
  - FEELING ABNORMAL [None]
